FAERS Safety Report 6726483-X (Version None)
Quarter: 2010Q2

REPORT INFORMATION
  Report Type: 
  Country: None (occurrence: None)
  Receive Date: 20100514
  Receipt Date: 20100209
  Transmission Date: 20101027
  Serious: Yes (Hospitalization, Other)
  Sender: FDA-Public Use
  Company Number: US-GENENTECH-254070

PATIENT
  Sex: Female
  Weight: 63.492 kg

DRUGS (8)
  1. XOLAIR [Suspect]
     Indication: ASTHMA
     Dosage: 300 MG, Q4W
     Route: 058
     Dates: start: 20071207
  2. SYMBICORT [Concomitant]
     Indication: ASTHMA
     Dosage: 2 PUFF, BID
     Route: 058
     Dates: start: 20060701
  3. ATROVENT HFA [Concomitant]
     Indication: ASTHMA
     Dosage: 17 A?G, PRN
     Route: 058
     Dates: start: 20060701
  4. XOPENEX [Concomitant]
     Indication: ASTHMA
     Dosage: 45 A?G, PRN
     Route: 058
     Dates: start: 20060701
  5. ZYRTEC [Concomitant]
     Indication: HYPERSENSITIVITY
     Dosage: 10 MG, QD
     Route: 048
     Dates: start: 20060701
  6. YAZ [Concomitant]
     Indication: CONTRACEPTION
     Dosage: UNK
     Route: 048
     Dates: start: 20030601
  7. ETODOLAC [Concomitant]
     Indication: PAIN
     Dosage: 400 MG, PRN
     Route: 048
     Dates: start: 20080601
  8. EPIPEN [Concomitant]
     Indication: HYPERSENSITIVITY
     Dosage: 0.3 UNK, PRN
     Dates: start: 20060701

REACTIONS (2)
  - ANAPHYLACTIC REACTION [None]
  - ASTHMA [None]
